FAERS Safety Report 9574638 (Version 1)
Quarter: 2013Q4

REPORT INFORMATION
  Report Type: Spontaneous
  Country: US (occurrence: US)
  Receive Date: 20131001
  Receipt Date: 20131001
  Transmission Date: 20140711
  Serious: No
  Sender: FDA-Public Use
  Company Number: US-PURDUE-USA-2012-0084704

PATIENT
  Sex: 0

DRUGS (2)
  1. BUTRANS [Suspect]
     Indication: PRODUCT USED FOR UNKNOWN INDICATION
     Dosage: UNK
     Route: 062
  2. PERCOCET /00867901/ [Suspect]
     Indication: PRODUCT USED FOR UNKNOWN INDICATION
     Dosage: UNK

REACTIONS (1)
  - Delirium [Unknown]
